FAERS Safety Report 6506115-6 (Version None)
Quarter: 2009Q4

REPORT INFORMATION
  Report Type: 
  Country: None (occurrence: None)
  Receive Date: 20091217
  Receipt Date: 20091217
  Transmission Date: 20100525
  Serious: Yes (Other)
  Sender: FDA-Public Use
  Company Number: None

PATIENT
  Age: 7 Month
  Sex: Female
  Weight: 7.43 kg

DRUGS (13)
  1. LINEZOLID [Suspect]
     Indication: ENTEROCOCCAL INFECTION
     Dosage: 74MG -10MG/KG/DOSE- Q8H IV BOLUS (1 DOSE)
     Route: 040
     Dates: start: 20091209, end: 20091209
  2. LINEZOLID [Suspect]
     Indication: PERITONITIS
     Dosage: 74MG -10MG/KG/DOSE- Q8H IV BOLUS (1 DOSE)
     Route: 040
     Dates: start: 20091209, end: 20091209
  3. TACROLIMUS [Concomitant]
  4. MYCOPHENOLATE MOFETIL [Concomitant]
  5. BACTRIM [Concomitant]
  6. VALGANCICLOVIR HCL [Concomitant]
  7. FLUCONAZOLE [Concomitant]
  8. METHYLPREDNISOLONE [Concomitant]
  9. ASPIRIN [Concomitant]
  10. CALCITRIOL [Concomitant]
  11. MORPHINE [Concomitant]
  12. MIDAZOLAM HCL [Concomitant]
  13. DEXMEDATOMIDINE [Concomitant]

REACTIONS (3)
  - DRUG INTERACTION [None]
  - HEART RATE DECREASED [None]
  - HYPERTENSION [None]
